FAERS Safety Report 18625849 (Version 1)
Quarter: 2020Q4

REPORT INFORMATION
  Report Type: Spontaneous
  Country: US (occurrence: US)
  Receive Date: 20201217
  Receipt Date: 20201217
  Transmission Date: 20210114
  Serious: Yes (Hospitalization)
  Sender: FDA-Public Use
  Company Number: US-LUPIN PHARMACEUTICALS INC.-2020-05042

PATIENT
  Age: 29 Year
  Sex: Female

DRUGS (7)
  1. PREGABALIN. [Suspect]
     Active Substance: PREGABALIN
     Indication: PAIN MANAGEMENT
     Dosage: 50 MILLIGRAM, TID (EVERY 8 HRS)
     Route: 065
  2. CAFFEINE CITRATE;PARACETAMOL [Suspect]
     Active Substance: ACETAMINOPHEN\CAFFEINE CITRATE
     Indication: PAIN MANAGEMENT
     Dosage: 200-650 MG QID
     Route: 065
  3. NAPROXEN. [Suspect]
     Active Substance: NAPROXEN
     Indication: PAIN MANAGEMENT
     Dosage: 500 MILLIGRAM, BID
     Route: 065
  4. OXYCODONE [Suspect]
     Active Substance: OXYCODONE
     Indication: PAIN MANAGEMENT
     Dosage: 5 MILLIGRAM, PRN (EVERY 4 HRS AS NEEDED)
     Route: 048
  5. TRAMADOL. [Suspect]
     Active Substance: TRAMADOL
     Indication: PAIN MANAGEMENT
     Dosage: 100 MILLIGRAM, QID (EVERY 6 HRS)
     Route: 065
  6. ACETAMINOPHEN AND CODEINE [Suspect]
     Active Substance: ACETAMINOPHEN\CODEINE PHOSPHATE
     Indication: PAIN MANAGEMENT
     Dosage: 600/60 MG, BID
     Route: 065
  7. MORPHINE [Suspect]
     Active Substance: MORPHINE
     Indication: PAIN MANAGEMENT
     Dosage: 15 MILLIGRAM, BID (EVERY 12 HRS IMMEDIATE-RELEASE)
     Route: 048

REACTIONS (1)
  - Drug ineffective [Unknown]
